FAERS Safety Report 8452939-8 (Version None)
Quarter: 2012Q2

REPORT INFORMATION
  Report Type: 
  Country: None (occurrence: None)
  Receive Date: 20120620
  Receipt Date: 20120615
  Transmission Date: 20120825
  Serious: Yes (Death)
  Sender: FDA-Public Use
  Company Number: PHHY2012BR052374

PATIENT
  Age: 72 Year
  Sex: Female

DRUGS (4)
  1. METFORMIN HCL [Concomitant]
  2. EXFORGE [Concomitant]
  3. ECACIL [Concomitant]
  4. ATENOLOL [Suspect]
     Route: 048

REACTIONS (3)
  - URINARY TRACT INFECTION [None]
  - RENAL FAILURE [None]
  - HAEMORRHAGE [None]
